FAERS Safety Report 10042638 (Version 2)
Quarter: 2014Q2

REPORT INFORMATION
  Report Type: Report from Study
  Country: JP (occurrence: JP)
  Receive Date: 20140327
  Receipt Date: 20140521
  Transmission Date: 20141212
  Serious: Yes (Death, Life-Threatening, Hospitalization)
  Sender: FDA-Public Use
  Company Number: PHHY2014JP036768

PATIENT
  Age: 81 Year
  Sex: Male

DRUGS (4)
  1. EXELON [Suspect]
     Indication: DEMENTIA ALZHEIMER^S TYPE
     Dosage: 4.5 MG ONCE A DAY (1.9 MG/24 HOURS)
     Route: 062
     Dates: start: 20130413, end: 20130510
  2. EXELON [Suspect]
     Dosage: 9 MG ONCE A DAY (4.6MG/24 HOURS)
     Route: 062
     Dates: start: 20130511, end: 20130607
  3. EXELON [Suspect]
     Dosage: 13.5 MG ONCE A DAY (6.9 MG/24 HOURS)
     Route: 062
     Dates: start: 20130608, end: 20130705
  4. EXELON [Suspect]
     Dosage: 18 MG ONCE A DAY (9.5 MG/24 HOURS)
     Route: 062
     Dates: start: 20130706, end: 20130824

REACTIONS (1)
  - Pneumonia [Fatal]
